FAERS Safety Report 24061216 (Version 1)
Quarter: 2024Q3

REPORT INFORMATION
  Report Type: Spontaneous
  Country: US (occurrence: US)
  Receive Date: 20240708
  Receipt Date: 20240708
  Transmission Date: 20241017
  Serious: No
  Sender: BAYER
  Company Number: US-BAYER-2024A097737

PATIENT
  Age: 52 Year
  Sex: Female

DRUGS (2)
  1. MIRENA [Suspect]
     Active Substance: LEVONORGESTREL
     Indication: Contraception
     Dosage: 20?G/DAY
     Route: 015
     Dates: start: 201704
  2. ALECENSA [Concomitant]
     Active Substance: ALECTINIB HYDROCHLORIDE
     Indication: Lung neoplasm malignant

REACTIONS (2)
  - Constipation [None]
  - Haemorrhoids [None]
